FAERS Safety Report 6494578-4 (Version None)
Quarter: 2009Q4

REPORT INFORMATION
  Report Type: 
  Country: None (occurrence: None)
  Receive Date: 20091214
  Receipt Date: 20090319
  Transmission Date: 20100525
  Serious: No
  Sender: FDA-Public Use
  Company Number: US-BRISTOL-MYERS SQUIBB COMPANY-14531123

PATIENT
  Age: 28 Year
  Sex: Female

DRUGS (4)
  1. ABILIFY [Suspect]
     Indication: BIPOLAR DISORDER
     Dosage: TAKEN FOR 3-4MONTHS
     Route: 048
     Dates: start: 20081013
  2. PAXIL [Concomitant]
     Dosage: TAKEN FOR 3-4 MONTHS STOPPED WHEN THE ABOVE EVENT OCCURRED
  3. TRILEPTAL [Concomitant]
     Dosage: TAKEN FOR 3-4 MONTHS STOPPED WHEN THE ABOVE EVENT OCCURRED
  4. SYNTHROID [Concomitant]

REACTIONS (1)
  - COORDINATION ABNORMAL [None]
